FAERS Safety Report 18511128 (Version 4)
Quarter: 2020Q4

REPORT INFORMATION
  Report Type: Spontaneous
  Country: US (occurrence: US)
  Receive Date: 20201117
  Receipt Date: 20201202
  Transmission Date: 20210114
  Serious: No
  Sender: FDA-Public Use
  Company Number: US-PFIZER INC-2020449718

PATIENT
  Age: 65 Year
  Sex: Female
  Weight: 77.11 kg

DRUGS (5)
  1. LAMOTRIGINE. [Concomitant]
     Active Substance: LAMOTRIGINE
     Indication: BIPOLAR DISORDER
     Dosage: 300 MG, DAILY (200MG TABLET BY MOUTH, 1-1/2 TABLETS (300MG) DAILY)
     Route: 048
  2. METHYLPHENIDATE HYDROCHLORIDE. [Concomitant]
     Active Substance: METHYLPHENIDATE HYDROCHLORIDE
     Indication: BIPOLAR DISORDER
     Dosage: 10 MG, 2X/DAY
     Route: 048
  3. PREGABALIN. [Suspect]
     Active Substance: PREGABALIN
     Indication: FIBROMYALGIA
     Dosage: 400 MG, DAILY
     Route: 048
  4. FLUOXETINE [Concomitant]
     Active Substance: FLUOXETINE HYDROCHLORIDE
     Indication: BIPOLAR DISORDER
     Dosage: 20 MG, 1X/DAY (BUT ALLOWED TO TAKE A 2ND CAPSULE IF NEEDED)
     Route: 048
  5. PREGABALIN. [Suspect]
     Active Substance: PREGABALIN
     Indication: COMPLEX REGIONAL PAIN SYNDROME

REACTIONS (9)
  - Movement disorder [Unknown]
  - Drug hypersensitivity [Unknown]
  - Drug intolerance [Unknown]
  - Mental disorder [Unknown]
  - Neck pain [Unknown]
  - Pain [Unknown]
  - Gait disturbance [Unknown]
  - Drug ineffective [Not Recovered/Not Resolved]
  - Memory impairment [Unknown]
